FAERS Safety Report 9694840 (Version 2)
Quarter: 2015Q3

REPORT INFORMATION
  Report Type: Report from Study
  Country: GB (occurrence: GB)
  Receive Date: 20131119
  Receipt Date: 20150928
  Transmission Date: 20151125
  Serious: Yes (Hospitalization, Other)
  Sender: FDA-Public Use
  Company Number: GB-ROCHE-1305017

PATIENT
  Sex: Female
  Weight: 68 kg

DRUGS (3)
  1. RITUXIMAB [Suspect]
     Active Substance: RITUXIMAB
     Indication: RHEUMATOID ARTHRITIS
     Route: 065
     Dates: start: 20080115
  2. TOCILIZUMAB [Suspect]
     Active Substance: TOCILIZUMAB
     Indication: RHEUMATOID ARTHRITIS
     Dosage: 17/JUN/2015: LAST DOSE OF TOCILIZUMAB PRIOR TO SAE
     Route: 065
     Dates: start: 20140114
  3. METHOTREXATE [Concomitant]
     Active Substance: METHOTREXATE

REACTIONS (5)
  - Mallory-Weiss syndrome [Unknown]
  - Diarrhoea [Unknown]
  - White blood cell count increased [Unknown]
  - Vomiting [Unknown]
  - Nausea [Unknown]
